FAERS Safety Report 8079158-1 (Version None)
Quarter: 2012Q1

REPORT INFORMATION
  Report Type: 
  Country: None (occurrence: None)
  Receive Date: 20120128
  Receipt Date: 20110726
  Transmission Date: 20120608
  Serious: No
  Sender: FDA-Public Use
  Company Number: US-ABBOTT-11P-163-0843063-00

PATIENT
  Weight: 88.53 kg

DRUGS (2)
  1. HUMIRA [Suspect]
     Indication: ANKYLOSING SPONDYLITIS
     Dates: start: 20090101
  2. GABAPENTIN [Concomitant]
     Indication: NEURALGIA

REACTIONS (2)
  - MUSCULOSKELETAL STIFFNESS [None]
  - BACK PAIN [None]
